FAERS Safety Report 6139635-7 (Version None)
Quarter: 2009Q2

REPORT INFORMATION
  Report Type: 
  Country: None (occurrence: None)
  Receive Date: 20090401
  Receipt Date: 20090227
  Transmission Date: 20091009
  Serious: No
  Sender: FDA-Public Use
  Company Number: US-BAYER-200910691BCC

PATIENT
  Age: 22 Year
  Sex: Female
  Weight: 68 kg

DRUGS (2)
  1. ALEVE [Suspect]
     Indication: HEADACHE
     Dosage: TOTAL DAILY DOSE: 220 MG  UNIT DOSE: 220 MG
     Route: 048
     Dates: start: 20090226, end: 20090227
  2. ORTHO TRI-CYCLEN LO [Concomitant]

REACTIONS (3)
  - HEADACHE [None]
  - NAUSEA [None]
  - TREMOR [None]
